FAERS Safety Report 22871142 (Version 12)
Quarter: 2025Q2

REPORT INFORMATION
  Report Type: Report from Study
  Country: US (occurrence: US)
  Receive Date: 20230828
  Receipt Date: 20250523
  Transmission Date: 20250717
  Serious: Yes (Other)
  Sender: TAKEDA
  Company Number: US-TAKEDA-2023TUS000282

PATIENT
  Age: 70 Year
  Sex: Female
  Weight: 62.1 kg

DRUGS (43)
  1. HUMAN IMMUNOGLOBULIN G [Suspect]
     Active Substance: HUMAN IMMUNOGLOBULIN G
     Indication: Immunodeficiency common variable
     Dosage: 20 GRAM, Q2WEEKS
     Dates: start: 20221116
  2. HUMAN IMMUNOGLOBULIN G [Suspect]
     Active Substance: HUMAN IMMUNOGLOBULIN G
     Dosage: 25 GRAM, Q2WEEKS
  3. HUMAN IMMUNOGLOBULIN G [Suspect]
     Active Substance: HUMAN IMMUNOGLOBULIN G
     Dosage: 27 GRAM, Q2WEEKS
  4. ACETAMINOPHEN [Concomitant]
     Active Substance: ACETAMINOPHEN
  5. VITAMIN C [Concomitant]
     Active Substance: ASCORBIC ACID
  6. MELATONIN [Concomitant]
     Active Substance: MELATONIN
  7. AMLODIPINE BESYLATE [Concomitant]
     Active Substance: AMLODIPINE BESYLATE
  8. ADVIL [Concomitant]
     Active Substance: IBUPROFEN
  9. MIRALAX [Concomitant]
     Active Substance: POLYETHYLENE GLYCOL 3350
  10. LEVOTHYROXINE [Concomitant]
     Active Substance: LEVOTHYROXINE
  11. VOLTAREN [Concomitant]
     Active Substance: DICLOFENAC SODIUM
  12. Coq [Concomitant]
  13. ALENDRONATE SODIUM [Concomitant]
     Active Substance: ALENDRONATE SODIUM
  14. ROSUVASTATIN CALCIUM [Concomitant]
     Active Substance: ROSUVASTATIN CALCIUM
  15. METOPROLOL SUCCINATE [Concomitant]
     Active Substance: METOPROLOL SUCCINATE
  16. LUTEIN [Concomitant]
     Active Substance: LUTEIN
  17. METFORMIN HYDROCHLORIDE [Concomitant]
     Active Substance: METFORMIN HYDROCHLORIDE
  18. PREDNISONE [Concomitant]
     Active Substance: PREDNISONE
  19. IPRATROPIUM BROMIDE [Concomitant]
     Active Substance: IPRATROPIUM BROMIDE
  20. STOOL SOFTENER (DOCUSATE) [Concomitant]
     Active Substance: DOCUSATE
  21. Dulcolax [Concomitant]
  22. IRBESARTAN [Concomitant]
     Active Substance: IRBESARTAN
  23. RIZATRIPTAN [Concomitant]
     Active Substance: RIZATRIPTAN
  24. DIPHENHYDRAMINE HYDROCHLORIDE [Concomitant]
     Active Substance: DIPHENHYDRAMINE HYDROCHLORIDE
  25. Lmx [Concomitant]
  26. FEXOFENADINE HYDROCHLORIDE [Concomitant]
     Active Substance: FEXOFENADINE HYDROCHLORIDE
  27. FLUCONAZOLE [Concomitant]
     Active Substance: FLUCONAZOLE
  28. CYCLOBENZAPRINE HYDROCHLORIDE [Concomitant]
     Active Substance: CYCLOBENZAPRINE HYDROCHLORIDE
  29. RESTASIS [Concomitant]
     Active Substance: CYCLOSPORINE
  30. ESTRADIOL [Concomitant]
     Active Substance: ESTRADIOL
  31. AZITHROMYCIN [Concomitant]
     Active Substance: AZITHROMYCIN
  32. Omega 3 6 9 complex [Concomitant]
  33. EPINEPHRINE [Concomitant]
     Active Substance: EPINEPHRINE
  34. BIOTIN [Concomitant]
     Active Substance: BIOTIN
  35. DIPHENHYDRAMINE [Concomitant]
     Active Substance: DIPHENHYDRAMINE
  36. CALCIUM [Concomitant]
     Active Substance: CALCIUM
  37. HYDROCHLOROTHIAZIDE [Concomitant]
     Active Substance: HYDROCHLOROTHIAZIDE
  38. TYLENOL EXTRA STRENGTH [Concomitant]
     Active Substance: ACETAMINOPHEN
  39. Acid reducer [Concomitant]
  40. FLONASE ALLERGY RELIEF [Concomitant]
     Active Substance: FLUTICASONE PROPIONATE
  41. IRON [Concomitant]
     Active Substance: IRON
  42. MAGNESIUM GLYCINATE [Concomitant]
     Active Substance: MAGNESIUM GLYCINATE
  43. CLARITIN-D NOS [Concomitant]
     Active Substance: LORATADINE\PSEUDOEPHEDRINE SULFATE

REACTIONS (26)
  - Autoimmune disorder [Unknown]
  - Post procedural complication [Unknown]
  - Osteoporosis [Unknown]
  - Multiple allergies [Unknown]
  - Infection [Unknown]
  - Joint dislocation [Unknown]
  - Infusion site discharge [Unknown]
  - Nasopharyngitis [Recovered/Resolved]
  - COVID-19 [Unknown]
  - Illness [Unknown]
  - Arthritis [Unknown]
  - Product dose omission issue [Unknown]
  - Device infusion issue [Unknown]
  - Needle issue [Unknown]
  - Seasonal allergy [Unknown]
  - Sinusitis [Recovered/Resolved]
  - Infusion site nodule [Unknown]
  - Infusion site mass [Recovering/Resolving]
  - Rash papular [Unknown]
  - Infusion site warmth [Unknown]
  - Swelling [Unknown]
  - Infusion site bruising [Recovering/Resolving]
  - Cough [Recovered/Resolved]
  - Infusion site swelling [Unknown]
  - Chills [Unknown]
  - Fatigue [Unknown]

NARRATIVE: CASE EVENT DATE: 20230810
